FAERS Safety Report 14251429 (Version 1)
Quarter: 2017Q4

REPORT INFORMATION
  Report Type: Report from Study
  Country: BR (occurrence: BR)
  Receive Date: 20171205
  Receipt Date: 20171205
  Transmission Date: 20180321
  Serious: Yes (Other)
  Sender: FDA-Public Use
  Company Number: PHHY2017BR177951

PATIENT
  Sex: Male

DRUGS (1)
  1. EXELON PATCH [Suspect]
     Active Substance: RIVASTIGMINE
     Indication: AGITATION
     Dosage: 13.3 MG, QD, PATCH 15 (CM2)
     Route: 062

REACTIONS (2)
  - Loss of consciousness [Unknown]
  - Product use in unapproved indication [Unknown]
